FAERS Safety Report 12548620 (Version 1)
Quarter: 2016Q3

REPORT INFORMATION
  Report Type: Spontaneous
  Country: US (occurrence: US)
  Receive Date: 20160712
  Receipt Date: 20160712
  Transmission Date: 20161109
  Serious: Yes (Hospitalization, Other)
  Sender: FDA-Public Use
  Company Number: US-TEVA-585626USA

PATIENT
  Sex: Female

DRUGS (3)
  1. DEPAKOTE [Suspect]
     Active Substance: DIVALPROEX SODIUM
     Route: 065
  2. LAMOTRIGINE. [Suspect]
     Active Substance: LAMOTRIGINE
     Route: 065
  3. VIMPAT [Suspect]
     Active Substance: LACOSAMIDE
     Route: 065

REACTIONS (3)
  - Seizure [Unknown]
  - Hospitalisation [Unknown]
  - Adverse event [Unknown]

NARRATIVE: CASE EVENT DATE: 201505
